FAERS Safety Report 7818184-1 (Version None)
Quarter: 2011Q4

REPORT INFORMATION
  Report Type: 
  Country: None (occurrence: None)
  Receive Date: 20111017
  Receipt Date: 20111012
  Transmission Date: 20120403
  Serious: Yes (Hospitalization)
  Sender: FDA-Public Use
  Company Number: BE-BAYER-2011-030034

PATIENT

DRUGS (2)
  1. NEXAVAR [Suspect]
     Dosage: DAILY DOSE 800 MG
     Dates: start: 20110216
  2. NEXAVAR [Suspect]
     Dosage: 400 MG DAILY

REACTIONS (5)
  - GASTRITIS [None]
  - GASTRIC HAEMORRHAGE [None]
  - HYPOTENSION [None]
  - HAEMATOCHEZIA [None]
  - FAECES DISCOLOURED [None]
